FAERS Safety Report 5513467-2 (Version None)
Quarter: 2007Q4

REPORT INFORMATION
  Report Type: 
  Country: None (occurrence: None)
  Receive Date: 20071112
  Receipt Date: 20071029
  Transmission Date: 20080405
  Serious: Yes (Life-Threatening, Hospitalization)
  Sender: FDA-Public Use
  Company Number: FR-AMGEN-UK235052

PATIENT
  Sex: Male

DRUGS (8)
  1. NEULASTA [Suspect]
     Indication: CHEMOTHERAPY
     Dates: start: 20070421, end: 20070421
  2. EMEND [Suspect]
     Route: 048
     Dates: start: 20070417, end: 20070419
  3. PROPRANOLOL [Concomitant]
     Route: 048
  4. HOLOXAN [Concomitant]
     Dates: start: 20070417
  5. ADRIBLASTINE [Concomitant]
     Dates: start: 20070417
  6. ZOFRAN [Concomitant]
  7. PRIMPERAN INJ [Concomitant]
  8. SOLU-MEDROL [Concomitant]

REACTIONS (7)
  - BONE MARROW FAILURE [None]
  - DRUG INEFFECTIVE [None]
  - EPISTAXIS [None]
  - MUCOSAL INFLAMMATION [None]
  - PURPURA [None]
  - PYREXIA [None]
  - THROMBOCYTOPENIA [None]
